FAERS Safety Report 8122626-4 (Version None)
Quarter: 2012Q1

REPORT INFORMATION
  Report Type: 
  Country: None (occurrence: None)
  Receive Date: 20120208
  Receipt Date: 20120202
  Transmission Date: 20120608
  Serious: Yes (Hospitalization)
  Sender: FDA-Public Use
  Company Number: FR-MERCK-1202USA00933

PATIENT
  Age: 48 Year
  Sex: Male

DRUGS (7)
  1. BLEOMYCIN [Concomitant]
     Route: 042
  2. DOXORUBICIN HYDROCHLORIDE [Concomitant]
     Route: 042
  3. EMEND [Suspect]
     Indication: NAUSEA
     Route: 048
     Dates: start: 20111117
  4. DACARBAZINE [Concomitant]
     Route: 042
  5. EMEND [Suspect]
     Route: 048
     Dates: start: 20111130, end: 20111130
  6. ZOFRAN [Concomitant]
     Route: 048
  7. VINBLASTINE SULFATE [Concomitant]
     Route: 042

REACTIONS (9)
  - HEADACHE [None]
  - CYTOLYTIC HEPATITIS [None]
  - ERYTHEMA [None]
  - HYPERTHERMIA [None]
  - JAUNDICE [None]
  - CHILLS [None]
  - CHOLESTASIS [None]
  - ASTHENIA [None]
  - HYPERSENSITIVITY [None]
